FAERS Safety Report 9723754 (Version 3)
Quarter: 2014Q1

REPORT INFORMATION
  Report Type: Spontaneous
  Country: US (occurrence: US)
  Receive Date: 20131202
  Receipt Date: 20140108
  Transmission Date: 20141002
  Serious: Yes (Death, Hospitalization, Other)
  Sender: FDA-Public Use
  Company Number: US-PFIZER INC-2013338631

PATIENT
  Age: 75 Year
  Sex: Female
  Weight: 40.82 kg

DRUGS (2)
  1. VFEND [Suspect]
     Indication: ASPERGILLUS INFECTION
     Dosage: 200 MG, 2X/DAY
     Route: 048
     Dates: start: 20130825
  2. ASPIRIN [Concomitant]
     Dosage: 81 MG, 1X/DAY

REACTIONS (7)
  - Aspergillus infection [Fatal]
  - Haematochezia [Unknown]
  - Anaemia [Unknown]
  - Failure to thrive [Unknown]
  - Leukocytosis [Unknown]
  - Back pain [Unknown]
  - Weight decreased [Unknown]
